FAERS Safety Report 6748131-5 (Version None)
Quarter: 2010Q2

REPORT INFORMATION
  Report Type: 
  Country: None (occurrence: None)
  Receive Date: 20100531
  Receipt Date: 20100524
  Transmission Date: 20101027
  Serious: No
  Sender: FDA-Public Use
  Company Number: US-JNJFOC-20091106644

PATIENT
  Sex: Female
  Weight: 79.38 kg

DRUGS (7)
  1. DURAGESIC-100 [Suspect]
     Indication: ABDOMINAL PAIN UPPER
     Dosage: 100 UG/HR 2 EVERY 48 HOURS
     Route: 062
  2. DURAGESIC-100 [Suspect]
     Indication: PANCREATITIS
     Dosage: 100 UG/HR 2 EVERY 48 HOURS
     Route: 062
  3. REGLAN [Concomitant]
     Indication: GASTROOESOPHAGEAL REFLUX DISEASE
     Dosage: AS NEEDED
     Route: 048
  4. ACIPHEX [Concomitant]
     Indication: GASTRIC DISORDER
     Route: 048
  5. POTASSIUM [Concomitant]
     Indication: SUPPLEMENTATION THERAPY
     Route: 048
  6. XANAX XR [Concomitant]
     Indication: PANIC ATTACK
     Route: 065
  7. DILAUDID [Concomitant]
     Indication: BREAKTHROUGH PAIN
     Route: 065

REACTIONS (4)
  - BREAKTHROUGH PAIN [None]
  - DRUG EFFECT DECREASED [None]
  - DRUG INEFFECTIVE [None]
  - INCORRECT DRUG ADMINISTRATION DURATION [None]
